FAERS Safety Report 6754460-1 (Version None)
Quarter: 2010Q2

REPORT INFORMATION
  Report Type: 
  Country: None (occurrence: None)
  Receive Date: 20100603
  Receipt Date: 20100527
  Transmission Date: 20101027
  Serious: Yes (Hospitalization)
  Sender: FDA-Public Use
  Company Number: PHHO2010US08002

PATIENT
  Sex: Male
  Weight: 96.145 kg

DRUGS (10)
  1. AFINITOR [Suspect]
     Indication: METASTATIC MALIGNANT MELANOMA
     Dosage: 5 MG
     Route: 048
     Dates: start: 20100414
  2. PACLITAXEL COMP-PAC+ [Suspect]
     Indication: METASTATIC MALIGNANT MELANOMA
     Dosage: 331 MG
     Route: 042
     Dates: start: 20100414
  3. CARBOPLATIN COMP-CAB+ [Suspect]
     Indication: METASTATIC MALIGNANT MELANOMA
     Dosage: 875 MG
     Route: 042
     Dates: start: 20100414
  4. KEPPRA [Concomitant]
     Indication: CONVULSION
  5. LISINOPRIL [Concomitant]
     Indication: HYPERTENSION
  6. PRILOSEC [Concomitant]
     Indication: GASTROOESOPHAGEAL REFLUX DISEASE
  7. FRAGMIN [Concomitant]
     Indication: ANTICOAGULANT THERAPY
  8. HYDROCORTISONE CREAM [Concomitant]
     Indication: RASH
  9. FLONASE [Concomitant]
     Indication: SEASONAL ALLERGY
  10. BENADRYL [Concomitant]
     Indication: PRURITUS

REACTIONS (4)
  - CHEST PAIN [None]
  - DYSPNOEA EXERTIONAL [None]
  - PULMONARY EMBOLISM [None]
  - VASCULAR CAUTERISATION [None]
